FAERS Safety Report 5159090-3 (Version None)
Quarter: 2006Q4

REPORT INFORMATION
  Report Type: 
  Country: None (occurrence: None)
  Receive Date: 20061128
  Receipt Date: 20060925
  Transmission Date: 20070319
  Serious: Yes (Hospitalization)
  Sender: FDA-Public Use
  Company Number: US-BOEHRINGER INGELHEIM PHARMACEUTICALS, INC.-2006-BP-11524BP

PATIENT
  Age: 63 Year
  Sex: Female

DRUGS (7)
  1. MIRAPEX [Suspect]
     Indication: RESTLESS LEGS SYNDROME
     Route: 048
     Dates: end: 20051001
  2. NEURONTIN [Concomitant]
     Indication: PAIN
     Route: 048
  3. AMARYL (GENERIC FORM) [Concomitant]
     Indication: DIABETES MELLITUS
  4. LORTAB [Concomitant]
  5. ZYRTEC [Concomitant]
  6. ALLEGRA [Concomitant]
  7. ZOLOFT [Concomitant]

REACTIONS (6)
  - BACK PAIN [None]
  - DIABETIC NEUROPATHY [None]
  - DYSTONIA [None]
  - JOINT DISLOCATION [None]
  - NEURALGIA [None]
  - STAPHYLOCOCCAL INFECTION [None]
